FAERS Safety Report 8691601 (Version 2)
Quarter: 2012Q4

REPORT INFORMATION
  Report Type: 
  Country: DE (occurrence: DE)
  Receive Date: 20120730
  Receipt Date: 20121105
  Transmission Date: 20130627
  Serious: Yes (Life-Threatening, Hospitalization, Other)
  Sender: FDA-Public Use
  Company Number: DE-ASTRAZENECA-2012SE52701

PATIENT
  Age: 15524 Day
  Sex: Female

DRUGS (8)
  1. SEROQUEL [Suspect]
     Indication: DEPRESSION
     Route: 048
     Dates: start: 20111108, end: 20120315
  2. SEROQUEL [Suspect]
     Indication: DEPRESSION
     Route: 048
     Dates: start: 201111
  3. COPAXONE [Suspect]
     Indication: MULTIPLE SCLEROSIS
     Route: 058
     Dates: start: 20111213, end: 20120319
  4. SERTRALIN [Concomitant]
     Route: 048
     Dates: start: 201010
  5. LOPAXONE [Concomitant]
  6. ALLERGOVAL [Concomitant]
  7. SIMVA [Concomitant]
  8. RUPAFIN [Concomitant]

REACTIONS (7)
  - Hepatic failure [Unknown]
  - Hypoalbuminaemia [Unknown]
  - Hepatic encephalopathy [Unknown]
  - Drug-induced liver injury [Recovering/Resolving]
  - Ascites [Unknown]
  - Cholecystitis [Recovering/Resolving]
  - Tremor [Unknown]
